FAERS Safety Report 23688932 (Version 1)
Quarter: 2024Q1

REPORT INFORMATION
  Report Type: Spontaneous
  Country: US (occurrence: US)
  Receive Date: 20240329
  Receipt Date: 20240329
  Transmission Date: 20240410
  Serious: Yes (Hospitalization)
  Sender: FDA-Public Use
  Company Number: US-Covis Pharma GmbH-2024COV00322

PATIENT

DRUGS (1)
  1. FERAHEME [Suspect]
     Active Substance: FERUMOXYTOL NON-STOICHIOMETRIC MAGNETITE
     Indication: Iron deficiency

REACTIONS (12)
  - Adverse event [Unknown]
  - Headache [Unknown]
  - Malaise [Unknown]
  - Muscular weakness [Unknown]
  - Head discomfort [Unknown]
  - Myalgia [Unknown]
  - Blood pressure abnormal [Unknown]
  - Swelling [Unknown]
  - Dizziness [Unknown]
  - Pyrexia [Unknown]
  - Chest discomfort [Unknown]
  - Product dose omission issue [Unknown]
